FAERS Safety Report 9900265 (Version 1)
Quarter: 2014Q1

REPORT INFORMATION
  Report Type: Spontaneous
  Country: ID (occurrence: ID)
  Receive Date: 20140215
  Receipt Date: 20140215
  Transmission Date: 20141002
  Serious: Yes (Other)
  Sender: FDA-Public Use
  Company Number: ID-ASTRAZENECA-2014SE09491

PATIENT
  Age: 60 Year
  Sex: Male

DRUGS (2)
  1. BRILINTA [Suspect]
     Route: 048
  2. ASPIRIN [Concomitant]

REACTIONS (2)
  - Haemoglobin decreased [Recovering/Resolving]
  - Melaena [Recovered/Resolved]
